FAERS Safety Report 6292865-6 (Version None)
Quarter: 2009Q3

REPORT INFORMATION
  Report Type: 
  Country: None (occurrence: None)
  Receive Date: 20090731
  Receipt Date: 20090722
  Transmission Date: 20100115
  Serious: Yes (Other)
  Sender: FDA-Public Use
  Company Number: PHHY2009CA30856

PATIENT
  Sex: Male

DRUGS (1)
  1. DIOVAN [Suspect]
     Dosage: 1 DF (80 MG), QD
     Route: 048

REACTIONS (3)
  - HIGH DENSITY LIPOPROTEIN DECREASED [None]
  - PROTEIN TOTAL INCREASED [None]
  - VASCULAR GRAFT [None]
